FAERS Safety Report 8614494-9 (Version None)
Quarter: 2012Q3

REPORT INFORMATION
  Report Type: 
  Country: None (occurrence: None)
  Receive Date: 20120810
  Receipt Date: 20120730
  Transmission Date: 20120928
  Serious: Yes (Hospitalization, Disabling, Other)
  Sender: FDA-Public Use
  Company Number: ACO_30896_2012

PATIENT
  Age: 30 Year
  Sex: Female

DRUGS (10)
  1. AMPYRA [Suspect]
     Indication: RELAPSING-REMITTING MULTIPLE SCLEROSIS
     Dosage: 10 MG, BID, ORAL
     Route: 048
     Dates: start: 20120401
  2. AMPYRA [Suspect]
     Indication: URINARY RETENTION
     Dosage: 10 MG, BID, ORAL
     Route: 048
     Dates: start: 20120401
  3. AMPYRA [Suspect]
     Indication: PARAPARESIS
     Dosage: 10 MG, BID, ORAL
     Route: 048
     Dates: start: 20120401
  4. SENNA /00142201/ (SENNA ALEXANDRINA) [Concomitant]
  5. KLONOPIN [Concomitant]
  6. COLACE (DOCUSATE SODIUM) [Concomitant]
  7. COPAXONE [Suspect]
     Indication: RELAPSING-REMITTING MULTIPLE SCLEROSIS
     Dosage: 20 MG/ML, QD, INTRAMUSCULAR
     Route: 030
     Dates: start: 20120501
  8. BACLOFEN [Concomitant]
  9. ATIVAN [Concomitant]
  10. PERCOCET [Concomitant]

REACTIONS (3)
  - ABASIA [None]
  - MULTIPLE SCLEROSIS RELAPSE [None]
  - PARAPLEGIA [None]
